FAERS Safety Report 9445829 (Version 3)
Quarter: 2013Q3

REPORT INFORMATION
  Report Type: Spontaneous
  Country: JP (occurrence: JP)
  Receive Date: 20130807
  Receipt Date: 20130920
  Transmission Date: 20140515
  Serious: Yes (Hospitalization)
  Sender: FDA-Public Use
  Company Number: JP-BRISTOL-MYERS SQUIBB COMPANY-19164946

PATIENT
  Age: 74 Year
  Sex: Male

DRUGS (4)
  1. METGLUCO [Suspect]
     Indication: DIABETES MELLITUS
     Route: 048
     Dates: start: 20120702, end: 20130717
  2. MEDET [Concomitant]
     Indication: DIABETES MELLITUS
     Route: 048
     Dates: start: 20110318, end: 20120702
  3. DAONIL [Concomitant]
     Indication: DIABETES MELLITUS
     Route: 048
     Dates: start: 20110808, end: 20130717
  4. JANUVIA [Concomitant]
     Indication: DIABETES MELLITUS
     Dosage: 18MAR11-02JUL12:50MG:471DAYS?02JUL12-17JUL13:100MG:380DAYS
     Route: 048
     Dates: start: 20110318, end: 20130717

REACTIONS (2)
  - Acidosis [Recovering/Resolving]
  - Blood creatine phosphokinase increased [Recovering/Resolving]
